FAERS Safety Report 5961141-0 (Version None)
Quarter: 2008Q4

REPORT INFORMATION
  Report Type: 
  Country: None (occurrence: None)
  Receive Date: 20081121
  Receipt Date: 20081113
  Transmission Date: 20090506
  Serious: Yes (Other)
  Sender: FDA-Public Use
  Company Number: GB-JNJFOC-20081104400

PATIENT
  Age: 33 Year
  Sex: Male

DRUGS (9)
  1. RISPERDAL [Suspect]
     Route: 048
  2. RISPERDAL [Suspect]
     Route: 048
  3. RISPERDAL [Suspect]
     Route: 048
  4. RISPERDAL [Suspect]
     Indication: SCHIZOPHRENIA, PARANOID TYPE
     Route: 048
  5. ORPHENADRINE CITRATE [Concomitant]
     Indication: SCHIZOPHRENIA, PARANOID TYPE
     Route: 065
  6. NITRAZEPAM [Concomitant]
     Indication: SCHIZOPHRENIA, PARANOID TYPE
     Route: 065
  7. QUETIAPINE FUMARATE [Concomitant]
     Indication: SCHIZOPHRENIA, PARANOID TYPE
     Route: 065
  8. ZOPICLONE [Concomitant]
     Indication: SCHIZOPHRENIA, PARANOID TYPE
     Route: 065
  9. PROCYCLIDINE HYDROCHLORIDE 2MG TAB [Concomitant]
     Indication: SCHIZOPHRENIA, PARANOID TYPE
     Route: 065

REACTIONS (6)
  - CONSTIPATION [None]
  - EATING DISORDER [None]
  - EXTRAPYRAMIDAL DISORDER [None]
  - INSOMNIA [None]
  - SCHIZOPHRENIA [None]
  - WEIGHT DECREASED [None]
